FAERS Safety Report 16324167 (Version 2)
Quarter: 2019Q2

REPORT INFORMATION
  Report Type: Spontaneous
  Country: PL (occurrence: PL)
  Receive Date: 20190517
  Receipt Date: 20190614
  Transmission Date: 20190711
  Serious: Yes (Other)
  Sender: FDA-Public Use
  Company Number: PL-ROCHE-2319449

PATIENT
  Age: 54 Year
  Sex: Male
  Weight: 96 kg

DRUGS (5)
  1. RIBAVIRIN. [Suspect]
     Active Substance: RIBAVIRIN
     Indication: PRODUCT USED FOR UNKNOWN INDICATION
     Route: 065
  2. FUROSEMID [FUROSEMIDE] [Concomitant]
  3. SOVALDI [Suspect]
     Active Substance: SOFOSBUVIR
     Indication: PRODUCT USED FOR UNKNOWN INDICATION
     Route: 065
  4. ZALDIAR [Concomitant]
     Active Substance: ACETAMINOPHEN\TRAMADOL HYDROCHLORIDE
  5. TRAMAL [Concomitant]
     Active Substance: TRAMADOL

REACTIONS (4)
  - Oesophageal varices haemorrhage [Unknown]
  - Gastrointestinal ulcer haemorrhage [Recovered/Resolved]
  - Vocal cord paralysis [Unknown]
  - Anaemia [Unknown]
